FAERS Safety Report 21047582 (Version 1)
Quarter: 2022Q3

REPORT INFORMATION
  Report Type: Spontaneous
  Country: US (occurrence: None)
  Receive Date: 20220705
  Receipt Date: 20220705
  Transmission Date: 20221026
  Serious: No
  Sender: FDA-Public Use
  Company Number: None

PATIENT
  Age: 74 Year
  Sex: Female
  Weight: 90 kg

DRUGS (10)
  1. NEBIVOLOL [Suspect]
     Active Substance: NEBIVOLOL
     Indication: Hypertension
     Dosage: OTHER QUANTITY : 1 TABLET(S);?
     Route: 048
     Dates: start: 20220615, end: 20220703
  2. VERAPAMIL HYDROCHLORIDE [Concomitant]
     Active Substance: VERAPAMIL HYDROCHLORIDE
  3. HYDROCHLOROTHIAZIDE [Concomitant]
  4. OMEPRAZOLE [Concomitant]
     Active Substance: OMEPRAZOLE
  5. XANAX [Concomitant]
     Active Substance: ALPRAZOLAM
  6. SUMATRIPTAN SUCCINATE [Concomitant]
     Active Substance: SUMATRIPTAN SUCCINATE
  7. HYOSCAMINE [Concomitant]
  8. ASPIRIN [Concomitant]
     Active Substance: ASPIRIN
  9. LIPOFALVANOID [Concomitant]
  10. ALIGN PROBIOTIC [Concomitant]

REACTIONS (2)
  - Wrong product administered [None]
  - Product dispensing error [None]

NARRATIVE: CASE EVENT DATE: 20220703
